FAERS Safety Report 4465962-5 (Version None)
Quarter: 2004Q3

REPORT INFORMATION
  Report Type: 
  Country: None (occurrence: None)
  Receive Date: 20040930
  Receipt Date: 20040922
  Transmission Date: 20050211
  Serious: Yes (Death)
  Sender: FDA-Public Use
  Company Number: 2004235026AR

PATIENT
  Age: 77 Year
  Sex: Female

DRUGS (1)
  1. CABERGOLINE [Suspect]
     Indication: PARKINSON'S DISEASE
     Dosage: 2 MG/DAY, ORAL
     Route: 048
     Dates: start: 20031201, end: 20040723

REACTIONS (2)
  - FALL [None]
  - HEAD INJURY [None]
